FAERS Safety Report 7617381-8 (Version None)
Quarter: 2011Q3

REPORT INFORMATION
  Report Type: 
  Country: None (occurrence: None)
  Receive Date: 20110718
  Receipt Date: 20110714
  Transmission Date: 20111222
  Serious: No
  Sender: FDA-Public Use
  Company Number: US-PFIZER INC-2011160170

PATIENT
  Sex: Male

DRUGS (3)
  1. CHANTIX [Suspect]
     Dosage: UNK
  2. CELEBREX [Suspect]
     Indication: ARTHRITIS
     Dosage: 100 MG, UNK
  3. CELEBREX [Suspect]

REACTIONS (4)
  - IRRITABILITY [None]
  - ANGER [None]
  - DRUG EFFECT DECREASED [None]
  - PAIN [None]
